FAERS Safety Report 9346570 (Version 1)
Quarter: 2013Q2

REPORT INFORMATION
  Report Type: Spontaneous
  Country: US (occurrence: US)
  Receive Date: 20130613
  Receipt Date: 20130613
  Transmission Date: 20140414
  Serious: Yes (Hospitalization)
  Sender: FDA-Public Use
  Company Number: US-BAYER-2013-071565

PATIENT
  Age: 36 Year
  Sex: Female
  Weight: 77.55 kg

DRUGS (6)
  1. GIANVI [Suspect]
  2. PHENAZOPYRIDINE [Concomitant]
     Dosage: 100 MG, UNK
  3. PROZAC [Concomitant]
     Dosage: 60 MG, QD
     Route: 048
  4. TRAZODONE [Concomitant]
     Dosage: 100 MG, BEDTIME
     Route: 048
  5. ROCEPHIN [Concomitant]
  6. AZITHROMYCIN [Concomitant]

REACTIONS (1)
  - Pulmonary embolism [None]
